FAERS Safety Report 7280506-0 (Version None)
Quarter: 2011Q1

REPORT INFORMATION
  Report Type: 
  Country: None (occurrence: None)
  Receive Date: 20110208
  Receipt Date: 20110126
  Transmission Date: 20110831
  Serious: Yes (Hospitalization)
  Sender: FDA-Public Use
  Company Number: JP-SANOFI-AVENTIS-2011SA005125

PATIENT
  Age: 94 Year
  Sex: Male

DRUGS (1)
  1. PLAVIX [Suspect]
     Route: 048
     Dates: start: 20101201, end: 20101210

REACTIONS (3)
  - BLOOD POTASSIUM INCREASED [None]
  - RENAL DISORDER [None]
  - BRADYCARDIA [None]
